FAERS Safety Report 19172863 (Version 1)
Quarter: 2021Q2

REPORT INFORMATION
  Report Type: Spontaneous
  Country: US (occurrence: US)
  Receive Date: 20210423
  Receipt Date: 20210423
  Transmission Date: 20210717
  Serious: No
  Sender: FDA-Public Use
  Company Number: US-LUPIN PHARMACEUTICALS INC.-2021-05065

PATIENT
  Sex: Female

DRUGS (5)
  1. TOPIRAMAT [Suspect]
     Active Substance: TOPIRAMATE
     Indication: ANXIETY
     Dosage: 25 MILLIGRAM, QD
     Route: 065
  2. TOPIRAMAT [Suspect]
     Active Substance: TOPIRAMATE
     Indication: DEPRESSION
     Dosage: 50 MILLIGRAM, QD
     Route: 065
  3. METFORMIN [Suspect]
     Active Substance: METFORMIN HYDROCHLORIDE
     Indication: WEIGHT DECREASED
  4. METFORMIN [Suspect]
     Active Substance: METFORMIN HYDROCHLORIDE
     Indication: POLYCYSTIC OVARIES
     Dosage: 500 MILLIGRAM, BID
     Route: 065
  5. TOPIRAMAT [Suspect]
     Active Substance: TOPIRAMATE
     Indication: WEIGHT DECREASED
     Dosage: 200 MILLIGRAM, QD
     Route: 065

REACTIONS (5)
  - Drug intolerance [Unknown]
  - Cognitive disorder [Unknown]
  - Diarrhoea [Unknown]
  - Off label use [Unknown]
  - Weight increased [Unknown]
